FAERS Safety Report 18716494 (Version 2)
Quarter: 2021Q1

REPORT INFORMATION
  Report Type: Spontaneous
  Country: IT (occurrence: IT)
  Receive Date: 20210108
  Receipt Date: 20210320
  Transmission Date: 20210419
  Serious: Yes (Other)
  Sender: FDA-Public Use
  Company Number: IT-AXELLIA-003628

PATIENT
  Age: 64 Year
  Sex: Male

DRUGS (2)
  1. PIPERACILLIN/TAZOBACTAM [Suspect]
     Active Substance: PIPERACILLIN SODIUM\TAZOBACTAM SODIUM
     Indication: ANTIBIOTIC THERAPY
     Dates: end: 20191216
  2. VANCOMYCIN [Suspect]
     Active Substance: VANCOMYCIN
     Indication: ANTIBIOTIC THERAPY
     Dates: end: 20191216

REACTIONS (3)
  - Lymphoma [Unknown]
  - Skin exfoliation [Unknown]
  - Purpura [Unknown]

NARRATIVE: CASE EVENT DATE: 20191215
